FAERS Safety Report 8179782-1 (Version None)
Quarter: 2012Q1

REPORT INFORMATION
  Report Type: 
  Country: None (occurrence: None)
  Receive Date: 20120229
  Receipt Date: 20120217
  Transmission Date: 20120608
  Serious: Yes (Death)
  Sender: FDA-Public Use
  Company Number: 2012HGS-003292

PATIENT
  Age: 55 Year
  Sex: Male

DRUGS (3)
  1. BENLYSTA [Suspect]
     Indication: SYSTEMIC LUPUS ERYTHEMATOSUS
     Dosage: 1 IN 28 D, INTRAVENOUS DRIP
     Route: 041
     Dates: start: 20111117, end: 20111117
  2. MEDROL [Concomitant]
  3. CELLCEPT (MYCOPHENOLATE MOFETIL) (MYCOPHENOLATE MOFETIL) [Concomitant]

REACTIONS (2)
  - RENAL FAILURE [None]
  - CARDIAC FAILURE [None]
